FAERS Safety Report 22081192 (Version 3)
Quarter: 2023Q1

REPORT INFORMATION
  Report Type: Spontaneous
  Country: BE (occurrence: BE)
  Receive Date: 20230309
  Receipt Date: 20230322
  Transmission Date: 20230417
  Serious: Yes (Death, Other)
  Sender: FDA-Public Use
  Company Number: BE-CELLTRION INC.-2023BE004738

PATIENT

DRUGS (12)
  1. TRASTUZUMAB [Suspect]
     Active Substance: TRASTUZUMAB
     Indication: Metastases to liver
     Dosage: 8 MILLIGRAM/KG (LOADING DOSE), EVERY 3 WEEKS
     Route: 042
     Dates: start: 201808
  2. TRASTUZUMAB [Suspect]
     Active Substance: TRASTUZUMAB
     Indication: Oesophageal adenocarcinoma
     Dosage: 6 MILLIGRAM/KG, EVERY 3 WEEKS
     Route: 042
     Dates: start: 201801
  3. TRASTUZUMAB [Suspect]
     Active Substance: TRASTUZUMAB
     Indication: Oesophageal cancer metastatic
     Dosage: 8 MG/KG, EVERY 3 WEEKS, LOADING DOSE
     Dates: start: 201801
  4. OXALIPLATIN [Suspect]
     Active Substance: OXALIPLATIN
     Indication: Oesophageal adenocarcinoma
     Dosage: 130 MG/M2
     Dates: start: 201808
  5. OXALIPLATIN [Suspect]
     Active Substance: OXALIPLATIN
     Indication: Metastases to liver
     Dosage: 130 MG/M2, EVERY 3 WEEKS
     Dates: start: 201801
  6. OXALIPLATIN [Suspect]
     Active Substance: OXALIPLATIN
     Indication: Oesophageal cancer metastatic
  7. CAPECITABINE [Suspect]
     Active Substance: CAPECITABINE
     Indication: Oesophageal adenocarcinoma
     Dosage: 1000 MG/M2, BID
     Dates: start: 201808
  8. CAPECITABINE [Suspect]
     Active Substance: CAPECITABINE
     Indication: Metastases to liver
     Dosage: 1000 MG/M2, 2X/DAY
     Dates: start: 201801
  9. CAPECITABINE [Suspect]
     Active Substance: CAPECITABINE
     Indication: Oesophageal cancer metastatic
  10. NIVOLUMAB [Concomitant]
     Active Substance: NIVOLUMAB
     Dosage: 3 MG/KG, EVERY 2 WEEKS
  11. RAMUCIRUMAB [Concomitant]
     Active Substance: RAMUCIRUMAB
  12. PACLITAXEL [Concomitant]
     Active Substance: PACLITAXEL

REACTIONS (8)
  - Death [Fatal]
  - Adenocarcinoma metastatic [Unknown]
  - Neuropathy peripheral [Unknown]
  - Dysphagia [Unknown]
  - Disease progression [Unknown]
  - Drug intolerance [Unknown]
  - Therapy partial responder [Unknown]
  - Off label use [Unknown]

NARRATIVE: CASE EVENT DATE: 20180101
